FAERS Safety Report 8488721-5 (Version None)
Quarter: 2012Q3

REPORT INFORMATION
  Report Type: 
  Country: None (occurrence: None)
  Receive Date: 20120705
  Receipt Date: 20120703
  Transmission Date: 20120928
  Serious: Yes (Other)
  Sender: FDA-Public Use
  Company Number: CN-ROCHE-1083905

PATIENT
  Age: 40 Year
  Sex: Male

DRUGS (3)
  1. ENTECAVIR [Concomitant]
     Indication: HEPATITIS B
  2. PEGASYS [Suspect]
     Indication: HEPATITIS B
     Dates: start: 20120101, end: 20120501
  3. THYMOPETIDUM [Concomitant]
     Indication: HEPATITIS B
     Dates: start: 20120101

REACTIONS (2)
  - SPLENOMEGALY [None]
  - PORTAL HYPERTENSION [None]
